FAERS Safety Report 8564015-4 (Version None)
Quarter: 2012Q3

REPORT INFORMATION
  Report Type: 
  Country: None (occurrence: None)
  Receive Date: 20120803
  Receipt Date: 20120801
  Transmission Date: 20120928
  Serious: Yes (Other)
  Sender: FDA-Public Use
  Company Number: PHHY2012TW066144

PATIENT
  Age: 54 Year
  Sex: Male

DRUGS (2)
  1. CLOZAPINE [Suspect]
     Indication: SCHIZOPHRENIA
     Dosage: 25 MG, DAILY
  2. CLOZAPINE [Suspect]
     Dosage: 300 MG, DAILY

REACTIONS (10)
  - PARAKERATOSIS [None]
  - PYREXIA [None]
  - ALANINE AMINOTRANSFERASE INCREASED [None]
  - ACANTHOSIS [None]
  - BLOOD ALKALINE PHOSPHATASE INCREASED [None]
  - SKIN OEDEMA [None]
  - RASH [None]
  - SKIN LESION [None]
  - ASPARTATE AMINOTRANSFERASE INCREASED [None]
  - PITYRIASIS ROSEA [None]
